FAERS Safety Report 8130269-1 (Version None)
Quarter: 2012Q1

REPORT INFORMATION
  Report Type: 
  Country: None (occurrence: None)
  Receive Date: 20120210
  Receipt Date: 20120203
  Transmission Date: 20120608
  Serious: Yes (Other)
  Sender: FDA-Public Use
  Company Number: PHHY2012FR009834

PATIENT

DRUGS (1)
  1. EXELON [Suspect]
     Dosage: 12 MG DAILY
     Route: 048

REACTIONS (1)
  - CARDIAC FAILURE [None]
